FAERS Safety Report 13824297 (Version 1)
Quarter: 2017Q3

REPORT INFORMATION
  Report Type: Spontaneous
  Country: US (occurrence: US)
  Receive Date: 20170801
  Receipt Date: 20170801
  Transmission Date: 20171127
  Serious: Yes (Other)
  Sender: FDA-Public Use
  Company Number: None

PATIENT
  Age: 74 Year
  Sex: Female
  Weight: 82.1 kg

DRUGS (1)
  1. TEMOZOLOMIDE, 100 MG [Suspect]
     Active Substance: TEMOZOLOMIDE
     Indication: BRAIN NEOPLASM MALIGNANT
     Route: 048
     Dates: start: 20160919, end: 20170801

REACTIONS (1)
  - Disease progression [None]

NARRATIVE: CASE EVENT DATE: 20170801
